FAERS Safety Report 7146679-5 (Version None)
Quarter: 2010Q4

REPORT INFORMATION
  Report Type: 
  Country: None (occurrence: None)
  Receive Date: 20101208
  Receipt Date: 20101122
  Transmission Date: 20110411
  Serious: Yes (Death, Other)
  Sender: FDA-Public Use
  Company Number: GR-AMGEN-GRCSP2010006201

PATIENT

DRUGS (7)
  1. ENBREL [Suspect]
     Indication: RHEUMATOID ARTHRITIS
     Dosage: 50 MG, WEEKLY
     Route: 058
     Dates: start: 20071113
  2. ARAVA [Concomitant]
     Dosage: UNK MG, UNK
     Route: 048
     Dates: start: 20020110
  3. DIOVAN HCT [Concomitant]
     Dosage: UNK MG, UNK
     Route: 048
     Dates: start: 20100211
  4. MONOSORDIL [Concomitant]
     Dosage: UNK
     Route: 048
     Dates: start: 20090707
  5. LESCOL [Concomitant]
     Dosage: UNK
     Route: 048
     Dates: start: 20090707
  6. XOZAL [Concomitant]
     Dosage: UNK
     Dates: start: 20090707
  7. CETIRIZINE HCL [Concomitant]
     Dosage: UNK
     Dates: start: 20090707

REACTIONS (3)
  - CYANOSIS [None]
  - DYSPNOEA [None]
  - RESPIRATORY FAILURE [None]
